FAERS Safety Report 16103644 (Version 1)
Quarter: 2019Q1

REPORT INFORMATION
  Report Type: Report from Study
  Country: US (occurrence: US)
  Receive Date: 20190322
  Receipt Date: 20190322
  Transmission Date: 20190418
  Serious: Yes (Other)
  Sender: FDA-Public Use
  Company Number: US-ROCHE-1861726

PATIENT
  Age: 36 Year
  Sex: Female
  Weight: 59.02 kg

DRUGS (15)
  1. ACETAMINOPHEN. [Concomitant]
     Active Substance: ACETAMINOPHEN
     Route: 048
  2. BENADRYL [Concomitant]
     Active Substance: DIPHENHYDRAMINE HYDROCHLORIDE
     Route: 048
  3. MEDROXYPROGESTERON ACETAT [Concomitant]
     Dosage: 1 ML EVERY 3 MONTHS
     Route: 030
  4. VALIUM [Concomitant]
     Active Substance: DIAZEPAM
     Route: 048
  5. ROBAXIN [Concomitant]
     Active Substance: METHOCARBAMOL
     Route: 048
  6. RITUXAN [Suspect]
     Active Substance: RITUXIMAB
     Dosage: 10MG/ML; 10 ML INTRAVENOUS EVERY 6 MONTHS
     Route: 042
  7. RITUXAN [Suspect]
     Active Substance: RITUXIMAB
     Indication: MULTIPLE SCLEROSIS
     Dosage: ONGOING; YES
     Route: 042
     Dates: start: 20171215
  8. BACLOFEN. [Concomitant]
     Active Substance: BACLOFEN
     Route: 048
  9. ZOFRAN [Concomitant]
     Active Substance: ONDANSETRON HYDROCHLORIDE
     Dosage: 2MG/ML
     Route: 042
  10. RITUXAN [Suspect]
     Active Substance: RITUXIMAB
     Indication: PRIMARY PROGRESSIVE MULTIPLE SCLEROSIS
     Dosage: DAY 1 AND DAY 15
     Route: 042
  11. FAMOTIDINE. [Concomitant]
     Active Substance: FAMOTIDINE
  12. FLOMAX [Concomitant]
     Active Substance: TAMSULOSIN HYDROCHLORIDE
     Dosage: AS NEEDED FOR URINARY RETENTION
     Route: 048
  13. METHYLPREDNISOLONE SODIUM SUCCINATE. [Concomitant]
     Active Substance: METHYLPREDNISOLONE SODIUM SUCCINATE
     Dosage: 125/2 ML; 2 ML ONCE
     Route: 042
  14. TYLENOL [Concomitant]
     Active Substance: ACETAMINOPHEN
     Route: 048
  15. DULCOLAX (BISACODYL) [Concomitant]
     Active Substance: BISACODYL
     Dosage: 1 SUPPOSITORY PER RECTUM 3 WEEKLY
     Route: 065

REACTIONS (7)
  - Septic shock [Unknown]
  - Bedridden [Unknown]
  - Off label use [Unknown]
  - Urinary tract infection [Unknown]
  - Intentional product use issue [Unknown]
  - Bedridden [Not Recovered/Not Resolved]
  - Pyrexia [Unknown]

NARRATIVE: CASE EVENT DATE: 201811
